FAERS Safety Report 7217420-2 (Version None)
Quarter: 2011Q1

REPORT INFORMATION
  Report Type: 
  Country: None (occurrence: None)
  Receive Date: 20110110
  Receipt Date: 20101231
  Transmission Date: 20110831
  Serious: Yes (Other)
  Sender: FDA-Public Use
  Company Number: PHHY2010CA89678

PATIENT
  Sex: Female

DRUGS (2)
  1. NEXIUM [Concomitant]
  2. ACLASTA [Suspect]
     Indication: BONE DENSITY DECREASED
     Dosage: 5 MG/ 100 ML
     Route: 042
     Dates: start: 20101230

REACTIONS (4)
  - HEADACHE [None]
  - SWOLLEN TONGUE [None]
  - FLUSHING [None]
  - HYPOAESTHESIA FACIAL [None]
